FAERS Safety Report 6747026-0 (Version None)
Quarter: 2010Q2

REPORT INFORMATION
  Report Type: 
  Country: None (occurrence: None)
  Receive Date: 20100528
  Receipt Date: 20100520
  Transmission Date: 20101027
  Serious: Yes (Hospitalization)
  Sender: FDA-Public Use
  Company Number: PHHO2010AU07171

PATIENT
  Sex: Male
  Weight: 116 kg

DRUGS (3)
  1. DIOVAN T30230+ [Suspect]
     Indication: HYPERTENSION
     Dosage: 80 MG
     Route: 048
     Dates: start: 20100421
  2. ASPIRIN [Suspect]
  3. SOLPRIN [Concomitant]
     Indication: PROPHYLAXIS

REACTIONS (8)
  - ABDOMINAL DISTENSION [None]
  - COLON POLYPECTOMY [None]
  - COLONIC POLYP [None]
  - CONCOMITANT DISEASE PROGRESSION [None]
  - DYSPHAGIA [None]
  - GASTROINTESTINAL HAEMORRHAGE [None]
  - HAEMORRHOIDAL HAEMORRHAGE [None]
  - MELAENA [None]
